FAERS Safety Report 8577678-4 (Version None)
Quarter: 2012Q3

REPORT INFORMATION
  Report Type: 
  Country: None (occurrence: None)
  Receive Date: 20120807
  Receipt Date: 20120727
  Transmission Date: 20120928
  Serious: Yes (Other)
  Sender: FDA-Public Use
  Company Number: US-RB-041138-12

PATIENT
  Age: 62 Year
  Sex: Male

DRUGS (6)
  1. KLONOPIN [Concomitant]
     Indication: ANXIETY
     Dosage: 4-8 MG A DAY
     Route: 065
     Dates: start: 19950101
  2. SUBOXONE [Suspect]
     Indication: PAIN
     Dosage: 3 IN AM., 3 AT LUNCH, 4 IN EVENING (10 PILLS A DAY)
     Route: 060
     Dates: start: 20110101, end: 20120201
  3. LYRICA [Concomitant]
     Indication: POTENTIATING DRUG INTERACTION
     Dosage: 4 TABLETS (DOSE UNKNOWN)
     Route: 065
  4. GABAPENTIN [Concomitant]
     Indication: POTENTIATING DRUG INTERACTION
     Dosage: 80 MG
     Route: 065
  5. SUBOXONE [Suspect]
     Dosage: DOSING DETAILS UNKNOWN
     Route: 060
     Dates: start: 20030101
  6. METHADONE HYDROCHLORIDE [Suspect]
     Indication: PAIN
     Dosage: 3 IN AM; 3 LUNCH; 4 EVENING (10 PILLS A DAY)
     Route: 048
     Dates: start: 20110101, end: 20110101

REACTIONS (6)
  - NERVOUS SYSTEM DISORDER [None]
  - DRUG DEPENDENCE [None]
  - FATIGUE [None]
  - DEPRESSION [None]
  - OFF LABEL USE [None]
  - INTENTIONAL OVERDOSE [None]
